FAERS Safety Report 15099312 (Version 2)
Quarter: 2018Q3

REPORT INFORMATION
  Report Type: Report from Study
  Country: BR (occurrence: BR)
  Receive Date: 20180702
  Receipt Date: 20180731
  Transmission Date: 20181010
  Serious: Yes (Other)
  Sender: FDA-Public Use
  Company Number: BR-SHIRE-BR201822643

PATIENT

DRUGS (3)
  1. ENDOBULIN [Concomitant]
     Active Substance: HUMAN IMMUNOGLOBULIN G
     Indication: PRODUCT USED FOR UNKNOWN INDICATION
  2. HYQVIA [Suspect]
     Active Substance: HUMAN IMMUNOGLOBULIN G\HYALURONIDASE RECOMBINANT HUMAN
     Dosage: 300 ML, UNK
     Route: 058
     Dates: start: 20180720
  3. HYQVIA [Suspect]
     Active Substance: HUMAN IMMUNOGLOBULIN G\HYALURONIDASE RECOMBINANT HUMAN
     Indication: IMMUNODEFICIENCY
     Dosage: 300 ML, UNK
     Route: 058
     Dates: start: 20180616

REACTIONS (5)
  - Cerebral palsy [Unknown]
  - Off label use [Unknown]
  - Drug administered to patient of inappropriate age [Unknown]
  - Application site oedema [Recovering/Resolving]
  - Keloid scar [Unknown]

NARRATIVE: CASE EVENT DATE: 20180616
